FAERS Safety Report 7545142-7 (Version None)
Quarter: 2011Q2

REPORT INFORMATION
  Report Type: 
  Country: None (occurrence: None)
  Receive Date: 20110610
  Receipt Date: 20110610
  Transmission Date: 20111010
  Serious: Yes (Life-Threatening, Hospitalization)
  Sender: FDA-Public Use
  Company Number: None

PATIENT
  Sex: Male
  Weight: 79.3795 kg

DRUGS (5)
  1. VISTARIL [Concomitant]
  2. MELATONIN [Concomitant]
  3. PROZAC [Concomitant]
  4. DEPAKOTE ER [Suspect]
     Indication: BRAIN INJURY
     Dosage: 1500 MG DAILY
     Dates: start: 20110225, end: 20110306
  5. TRAZODONE HCL [Concomitant]

REACTIONS (2)
  - TOXICITY TO VARIOUS AGENTS [None]
  - HYPERAMMONAEMIA [None]
